FAERS Safety Report 9182604 (Version 1)
Quarter: 2013Q1

REPORT INFORMATION
  Report Type: Spontaneous
  Country: US (occurrence: US)
  Receive Date: 20130322
  Receipt Date: 20130322
  Transmission Date: 20140127
  Serious: Yes (Other)
  Sender: FDA-Public Use
  Company Number: US-BRISTOL-MYERS SQUIBB COMPANY-16841447

PATIENT
  Age: 74 Year
  Sex: Female

DRUGS (4)
  1. ERBITUX [Suspect]
     Indication: TONSIL CANCER
     Route: 042
     Dates: start: 20120726
  2. OMEPRAZOLE [Concomitant]
  3. COZAAR [Concomitant]
  4. ATENOLOL [Concomitant]

REACTIONS (8)
  - Blood pressure decreased [Recovering/Resolving]
  - Nausea [Unknown]
  - Cold sweat [Recovering/Resolving]
  - Feeling hot [Unknown]
  - Lethargy [Unknown]
  - Chest pain [Unknown]
  - Headache [Unknown]
  - Oropharyngeal pain [Unknown]
